FAERS Safety Report 5640741-1 (Version None)
Quarter: 2008Q1

REPORT INFORMATION
  Report Type: 
  Country: None (occurrence: None)
  Receive Date: 20080225
  Receipt Date: 20080212
  Transmission Date: 20080703
  Serious: Yes (Other)
  Sender: FDA-Public Use
  Company Number: 2008BI003955

PATIENT
  Age: 41 Year
  Sex: Female

DRUGS (7)
  1. ZEVALIN [Suspect]
     Indication: B-CELL LYMPHOMA
     Dosage: 803.3 MBQ; 1X; IV
     Route: 042
     Dates: start: 20080117, end: 20080117
  2. RITUXIMAB [Concomitant]
  3. RITUXIMAB [Concomitant]
  4. CARMUSTINE [Concomitant]
  5. CYTARABINE [Concomitant]
  6. ETOPOSIDE [Concomitant]
  7. MELPHALAN [Concomitant]

REACTIONS (2)
  - ACUTE RESPIRATORY DISTRESS SYNDROME [None]
  - ENTEROCOLITIS [None]
